FAERS Safety Report 22153935 (Version 1)
Quarter: 2023Q1

REPORT INFORMATION
  Report Type: Report from Study
  Country: JP (occurrence: JP)
  Receive Date: 20230330
  Receipt Date: 20230330
  Transmission Date: 20230418
  Serious: Yes (Hospitalization)
  Sender: FDA-Public Use
  Company Number: JP-JNJFOC-20230360891

PATIENT
  Age: 80 Year
  Sex: Male
  Weight: 66 kg

DRUGS (13)
  1. ABIRATERONE ACETATE [Suspect]
     Active Substance: ABIRATERONE ACETATE
     Indication: Prostate cancer metastatic
     Route: 048
  2. PREDNISOLONE [Suspect]
     Active Substance: PREDNISOLONE
     Indication: Prostate cancer metastatic
     Route: 048
  3. IPATASERTIB [Suspect]
     Active Substance: IPATASERTIB
     Dates: start: 20180905
  4. HYALURONATE SODIUM [Concomitant]
     Active Substance: HYALURONATE SODIUM
     Route: 047
     Dates: start: 20160502
  5. DIQUAFOSOL TETRASODIUM [Concomitant]
     Active Substance: DIQUAFOSOL TETRASODIUM
     Route: 047
     Dates: start: 20160502
  6. SILODOSIN [Concomitant]
     Active Substance: SILODOSIN
     Dates: start: 20180326, end: 20220802
  7. MAGNESIUM OXIDE [Concomitant]
     Active Substance: MAGNESIUM OXIDE
     Route: 048
     Dates: start: 20180425, end: 20180917
  8. LOPERAMIDE [Concomitant]
     Active Substance: LOPERAMIDE
     Route: 048
     Dates: start: 20180921, end: 20180922
  9. EPINASTINE HYDROCHLORIDE [Concomitant]
     Active Substance: EPINASTINE HYDROCHLORIDE
     Route: 048
     Dates: start: 20180921, end: 20180927
  10. PETROLATUM [Concomitant]
     Active Substance: PETROLATUM
     Route: 061
     Dates: start: 20180921, end: 20181004
  11. REPAGLINIDE [Concomitant]
     Active Substance: REPAGLINIDE
  12. LIRAGLUTIDE RECOMBINANT [Concomitant]
     Active Substance: LIRAGLUTIDE
     Dosage: LIRAGLUTIDE 0.3 MG (26-APR-2019 TO 29/APR/2023)  ?LIRAGLUTIDE 0.6MG  (30-APR-2019 TO 04-MAY-2019)?LI
  13. INSULINS AND ANALOGUES FOR INJECTION, LONG-ACTING [Concomitant]

REACTIONS (1)
  - Glycosylated haemoglobin increased [Not Recovered/Not Resolved]
